FAERS Safety Report 6743937-0 (Version None)
Quarter: 2010Q2

REPORT INFORMATION
  Report Type: 
  Country: None (occurrence: None)
  Receive Date: 20100527
  Receipt Date: 20100514
  Transmission Date: 20101027
  Serious: Yes (Other)
  Sender: FDA-Public Use
  Company Number: PHHY2010CN32212

PATIENT
  Sex: Female

DRUGS (1)
  1. KETOTIFEN HYDROGEN FUMARATE [Suspect]
     Dosage: MATERNAL DOSE: 1 MG BID
     Route: 064

REACTIONS (3)
  - DRUG EXPOSURE DURING PREGNANCY [None]
  - PREMATURE BABY [None]
  - SMALL FOR DATES BABY [None]
